FAERS Safety Report 8255319-3 (Version None)
Quarter: 2012Q1

REPORT INFORMATION
  Report Type: 
  Country: None (occurrence: None)
  Receive Date: 20120330
  Receipt Date: 20120319
  Transmission Date: 20120608
  Serious: Yes (Other)
  Sender: FDA-Public Use
  Company Number: 2012PL000058

PATIENT
  Sex: Female

DRUGS (1)
  1. PROLEUKIN [Suspect]
     Indication: RENAL CANCER
     Dosage: 600000 IU/KG;Q8H;IV
     Route: 042
     Dates: start: 20120220, end: 20120223

REACTIONS (2)
  - ACIDOSIS [None]
  - INTESTINAL ISCHAEMIA [None]
